FAERS Safety Report 7286137-0 (Version None)
Quarter: 2011Q1

REPORT INFORMATION
  Report Type: 
  Country: None (occurrence: None)
  Receive Date: 20110131
  Receipt Date: 20110125
  Transmission Date: 20110831
  Serious: Yes (Life-Threatening, Hospitalization)
  Sender: FDA-Public Use
  Company Number: TIR-00335

PATIENT
  Age: 33 Year
  Sex: Female

DRUGS (2)
  1. DIPHENHYDRAMINE [Suspect]
  2. LEVOTHYROXINE [Suspect]
     Indication: HYPOTHYROIDISM

REACTIONS (10)
  - TACHYCARDIA [None]
  - GRAND MAL CONVULSION [None]
  - OVERDOSE [None]
  - LETHARGY [None]
  - WHITE BLOOD CELL COUNT INCREASED [None]
  - BLOOD PH INCREASED [None]
  - BLOOD PRESSURE DECREASED [None]
  - BLOOD GLUCOSE INCREASED [None]
  - HAEMATOCRIT DECREASED [None]
  - STATUS EPILEPTICUS [None]
